FAERS Safety Report 6195480-8 (Version None)
Quarter: 2009Q2

REPORT INFORMATION
  Report Type: 
  Country: None (occurrence: None)
  Receive Date: 20090519
  Receipt Date: 20090514
  Transmission Date: 20091009
  Serious: Yes (Hospitalization, Other)
  Sender: FDA-Public Use
  Company Number: US-GENENTECH-278694

PATIENT
  Sex: Female
  Weight: 65 kg

DRUGS (1)
  1. RAPTIVA [Suspect]
     Indication: PSORIASIS
     Dosage: 70 MG, 1/WEEK
     Route: 058
     Dates: start: 20060116, end: 20090226

REACTIONS (2)
  - AMNESIA [None]
  - HYPOAESTHESIA [None]
